FAERS Safety Report 8174740-5 (Version None)
Quarter: 2012Q1

REPORT INFORMATION
  Report Type: 
  Country: None (occurrence: None)
  Receive Date: 20120229
  Receipt Date: 20120224
  Transmission Date: 20120608
  Serious: Yes (Other)
  Sender: FDA-Public Use
  Company Number: JP-GLAXOSMITHKLINE-B0784426A

PATIENT
  Age: 68 Year
  Sex: Female

DRUGS (4)
  1. NOVORAPID [Concomitant]
     Route: 058
  2. ADALAT CC [Concomitant]
     Route: 048
  3. DIOVAN [Concomitant]
     Route: 048
  4. FLUTICASONE PROPIONATE/SALMETEROL [Suspect]
     Indication: ASTHMA
     Route: 055
     Dates: start: 20120223

REACTIONS (2)
  - LOSS OF CONSCIOUSNESS [None]
  - HYPOGLYCAEMIA [None]
